FAERS Safety Report 9846446 (Version 1)
Quarter: 2014Q1

REPORT INFORMATION
  Report Type: Spontaneous
  Country: US (occurrence: None)
  Receive Date: 20140123
  Receipt Date: 20140123
  Transmission Date: 20141002
  Serious: Yes (Hospitalization, Disabling, Other)
  Sender: FDA-Public Use
  Company Number: None

PATIENT
  Age: 55 Year
  Sex: Female
  Weight: 102.06 kg

DRUGS (2)
  1. LEVAQUIN [Suspect]
     Indication: URINARY TRACT INFECTION
     Dosage: 750MG  ONCE DAILY  INTO A VEIN
     Route: 042
     Dates: start: 20130104, end: 20130117
  2. LEVAQUIN [Suspect]
     Indication: CULTURE NEGATIVE
     Dosage: 750MG  ONCE DAILY  INTO A VEIN
     Route: 042
     Dates: start: 20130104, end: 20130117

REACTIONS (6)
  - Pain [None]
  - Neuropathy peripheral [None]
  - Depression [None]
  - Anxiety [None]
  - Tinnitus [None]
  - Tendon rupture [None]
